FAERS Safety Report 10431120 (Version 3)
Quarter: 2014Q3

REPORT INFORMATION
  Report Type: Report from Study
  Country: DE (occurrence: DE)
  Receive Date: 20140904
  Receipt Date: 20140917
  Transmission Date: 20150326
  Serious: Yes (Other)
  Sender: FDA-Public Use
  Company Number: PHHO2014DE011784

PATIENT

DRUGS (13)
  1. ESOMEPRAZOL//ESOMEPRAZOLE SODIUM [Concomitant]
     Dosage: 20 MG, UNK
  2. AFINITOR [Suspect]
     Active Substance: EVEROLIMUS
     Indication: METASTATIC RENAL CELL CARCINOMA
     Dosage: 10 MG, UNK
     Route: 048
     Dates: start: 20130914
  3. VALSARTAN. [Concomitant]
     Active Substance: VALSARTAN
     Dosage: 160/12.5
  4. ALLOPURINOL. [Concomitant]
     Active Substance: ALLOPURINOL
     Dosage: 100 MG, UNK
  5. ZOPLICONE [Concomitant]
     Active Substance: ZOPICLONE
     Dosage: 7.5
  6. SIMVASTATIN. [Concomitant]
     Active Substance: SIMVASTATIN
     Dosage: 30 MG, UNK
  7. NOVAMINSULFON [Concomitant]
     Active Substance: METAMIZOLE
     Dosage: 500 MG, UNK
  8. CEFASEL [Concomitant]
     Dosage: 300
  9. URBASON//METHYLPREDNISOLONE [Concomitant]
     Dosage: 16 MG, Q72H (1/2 TABLET)
  10. HEXAMIDIN [Concomitant]
     Dosage: 0.2
  11. LEVETIRACETAM. [Concomitant]
     Active Substance: LEVETIRACETAM
     Dosage: 500 MG, UNK
  12. TORASEMID [Concomitant]
     Active Substance: TORSEMIDE
     Dosage: 10 MG, UNK
  13. CARVEDILOL. [Concomitant]
     Active Substance: CARVEDILOL
     Dosage: 25

REACTIONS (1)
  - Dementia [Not Recovered/Not Resolved]

NARRATIVE: CASE EVENT DATE: 20140729
